FAERS Safety Report 4299829-2 (Version None)
Quarter: 2004Q1

REPORT INFORMATION
  Report Type: 
  Country: None (occurrence: None)
  Receive Date: 20040219
  Receipt Date: 20030130
  Transmission Date: 20041129
  Serious: Yes (Hospitalization, Disabling, Other)
  Sender: FDA-Public Use
  Company Number: WAES 0302USA00108

PATIENT
  Sex: Male
  Weight: 98 kg

DRUGS (3)
  1. IBUPROFEN [Concomitant]
     Indication: ARTHRALGIA
     Dates: start: 19970101, end: 19980101
  2. INSULIN [Concomitant]
  3. VIOXX [Suspect]
     Indication: ARTHRALGIA
     Route: 048

REACTIONS (16)
  - ACUTE MYOCARDIAL INFARCTION [None]
  - ARTHROPATHY [None]
  - ASTHMA [None]
  - ATHEROSCLEROSIS [None]
  - CARDIAC FAILURE CONGESTIVE [None]
  - CARDIAC VALVE DISEASE [None]
  - CEREBROVASCULAR ACCIDENT [None]
  - CHRONIC OBSTRUCTIVE AIRWAYS DISEASE [None]
  - EMOTIONAL DISTRESS [None]
  - GLAUCOMA [None]
  - KIDNEY INFECTION [None]
  - PULMONARY HYPERTENSION [None]
  - RECTAL HAEMORRHAGE [None]
  - SLEEP APNOEA SYNDROME [None]
  - THROMBOSIS [None]
  - VERTIGO [None]
